FAERS Safety Report 25520406 (Version 2)
Quarter: 2025Q4

REPORT INFORMATION
  Report Type: Report from Study
  Country: CN (occurrence: CN)
  Receive Date: 20250704
  Receipt Date: 20251020
  Transmission Date: 20260117
  Serious: Yes (Hospitalization)
  Sender: BEIGENE
  Company Number: CN-JIANGSUAOSAIKANG-2025ASK003466

PATIENT
  Age: 52 Year
  Weight: 63.5 kg

DRUGS (44)
  1. TISLELIZUMAB [Suspect]
     Active Substance: TISLELIZUMAB
     Indication: Adenocarcinoma gastric
     Dosage: 200MG,EVERY 3 WEEKS
  2. TISLELIZUMAB [Suspect]
     Active Substance: TISLELIZUMAB
     Dosage: 200MG,EVERY 3 WEEKS
     Route: 041
  3. TISLELIZUMAB [Suspect]
     Active Substance: TISLELIZUMAB
     Dosage: 200MG,EVERY 3 WEEKS
     Route: 041
  4. TISLELIZUMAB [Suspect]
     Active Substance: TISLELIZUMAB
     Dosage: 200MG,EVERY 3 WEEKS
  5. INVESTIGATIONAL PRODUCT [Suspect]
     Active Substance: INVESTIGATIONAL PRODUCT
     Indication: Adenocarcinoma gastric
     Dosage: 6MG/KG,EVERY 3 WEEKS
  6. INVESTIGATIONAL PRODUCT [Suspect]
     Active Substance: INVESTIGATIONAL PRODUCT
     Dosage: 6MG/KG,EVERY 3 WEEKS
     Route: 041
  7. INVESTIGATIONAL PRODUCT [Suspect]
     Active Substance: INVESTIGATIONAL PRODUCT
     Dosage: 6MG/KG,EVERY 3 WEEKS
     Route: 041
  8. INVESTIGATIONAL PRODUCT [Suspect]
     Active Substance: INVESTIGATIONAL PRODUCT
     Dosage: 6MG/KG,EVERY 3 WEEKS
  9. OXALIPLATIN [Suspect]
     Active Substance: OXALIPLATIN
     Indication: Adenocarcinoma gastric
     Dosage: 130MG/M2,EVERY 3 WEEKS
     Route: 041
  10. OXALIPLATIN [Suspect]
     Active Substance: OXALIPLATIN
     Dosage: 130MG/M2,EVERY 3 WEEKS
  11. CAPECITABINE [Suspect]
     Active Substance: CAPECITABINE
     Indication: Adenocarcinoma gastric
     Dosage: 1000 MG/M2, BID/D1-D14 PER CYCLE
  12. CAPECITABINE [Suspect]
     Active Substance: CAPECITABINE
     Dosage: 1000 MG/M2, BID/D1-D14 PER CYCLE
     Route: 048
  13. CAPECITABINE [Suspect]
     Active Substance: CAPECITABINE
     Dosage: 1000 MG/M2, BID/D1-D14 PER CYCLE
  14. CAPECITABINE [Suspect]
     Active Substance: CAPECITABINE
     Dosage: 1000 MG/M2, BID/D1-D14 PER CYCLE
     Route: 048
  15. CAPECITABINE [Suspect]
     Active Substance: CAPECITABINE
     Dosage: 1000 MG/M2, BID/D1-D14 PER CYCLE
  16. CAPECITABINE [Suspect]
     Active Substance: CAPECITABINE
     Dosage: 1000 MG/M2, BID/D1-D14 PER CYCLE
     Route: 048
  17. CAPECITABINE [Suspect]
     Active Substance: CAPECITABINE
     Dosage: 1000 MG/M2, BID/D1-D14 PER CYCLE
  18. CAPECITABINE [Suspect]
     Active Substance: CAPECITABINE
     Dosage: 1000 MG/M2, BID/D1-D14 PER CYCLE
     Route: 048
  19. CAPECITABINE [Suspect]
     Active Substance: CAPECITABINE
     Dosage: 1000 MG/M2, BID/D1-D14 PER CYCLE
  20. CAPECITABINE [Suspect]
     Active Substance: CAPECITABINE
     Dosage: 1000 MG/M2, BID/D1-D14 PER CYCLE
     Route: 048
  21. CAPECITABINE [Suspect]
     Active Substance: CAPECITABINE
     Dosage: 1000 MG/M2, BID/D1-D14 PER CYCLE
  22. CAPECITABINE [Suspect]
     Active Substance: CAPECITABINE
     Dosage: 1000 MG/M2, BID/D1-D14 PER CYCLE
     Route: 048
  23. CAPECITABINE [Suspect]
     Active Substance: CAPECITABINE
     Dosage: 750 MG/M2, BID/D1-D14 PER CYCLE
  24. CAPECITABINE [Suspect]
     Active Substance: CAPECITABINE
     Dosage: 750 MG/M2, BID/D1-D14 PER CYCLE
     Route: 048
  25. CAPECITABINE [Suspect]
     Active Substance: CAPECITABINE
     Dosage: 750 MG/M2, BID/D1-D14 PER CYCLE
  26. CAPECITABINE [Suspect]
     Active Substance: CAPECITABINE
     Dosage: 750 MG/M2, BID/D1-D14 PER CYCLE
     Route: 048
  27. CAPECITABINE [Suspect]
     Active Substance: CAPECITABINE
     Dosage: 750 MG/M2, BID/D1-D14 PER CYCLE
  28. CAPECITABINE [Suspect]
     Active Substance: CAPECITABINE
     Dosage: 750 MG/M2, BID/D1-D14 PER CYCLE
     Route: 048
  29. CAPECITABINE [Suspect]
     Active Substance: CAPECITABINE
     Dosage: 750 MG/M2, BID/D1-D14 PER CYCLE
  30. CAPECITABINE [Suspect]
     Active Substance: CAPECITABINE
     Dosage: 750 MG/M2, BID/D1-D14 PER CYCLE
     Route: 048
  31. CAPECITABINE [Suspect]
     Active Substance: CAPECITABINE
     Dosage: 750 MG/M2, BID/D1-D14 PER CYCLE
  32. CAPECITABINE [Suspect]
     Active Substance: CAPECITABINE
     Dosage: 750 MG/M2, BID/D1-D14 PER CYCLE
     Route: 048
  33. INSULIN ASPART\INSULIN DEGLUDEC [Concomitant]
     Active Substance: INSULIN ASPART\INSULIN DEGLUDEC
     Indication: Type 2 diabetes mellitus
     Dosage: 24 IU IN THE MORNING AND 16 IU IN THE EVENING, BID
  34. INSULIN ASPART\INSULIN DEGLUDEC [Concomitant]
     Active Substance: INSULIN ASPART\INSULIN DEGLUDEC
     Dosage: 24 IU IN THE MORNING AND 16 IU IN THE EVENING, BID
     Route: 058
  35. INSULIN ASPART\INSULIN DEGLUDEC [Concomitant]
     Active Substance: INSULIN ASPART\INSULIN DEGLUDEC
     Dosage: 16U, QD
  36. INSULIN ASPART\INSULIN DEGLUDEC [Concomitant]
     Active Substance: INSULIN ASPART\INSULIN DEGLUDEC
     Dosage: 16U, QD
     Route: 058
  37. HERBALS\DIAMMONIUM GLYCYRRHIZINATE [Concomitant]
     Active Substance: HERBALS\DIAMMONIUM GLYCYRRHIZINATE
     Indication: Hepatobiliary disorder prophylaxis
     Dosage: 150MG, TID
     Route: 048
  38. HERBALS\DIAMMONIUM GLYCYRRHIZINATE [Concomitant]
     Active Substance: HERBALS\DIAMMONIUM GLYCYRRHIZINATE
     Dosage: 150MG, TID
  39. LEVOTHYROXINE SODIUM [Concomitant]
     Active Substance: LEVOTHYROXINE SODIUM
     Indication: Hypothyroidism
     Dosage: 50?G, QD
     Route: 048
  40. LEVOTHYROXINE SODIUM [Concomitant]
     Active Substance: LEVOTHYROXINE SODIUM
     Dosage: 50?G, QD
  41. BIFENDATE [Concomitant]
     Active Substance: BIFENDATE
     Indication: Hepatobiliary disorder prophylaxis
     Dosage: UNK, TID
     Route: 048
  42. BIFENDATE [Concomitant]
     Active Substance: BIFENDATE
     Dosage: UNK, TID
  43. COENZYME Q10 [Concomitant]
     Active Substance: DIETARY SUPPLEMENT\UBIDECARENONE
     Indication: Blood creatine phosphokinase increased
     Dosage: 10MG, TID
     Route: 048
  44. COENZYME Q10 [Concomitant]
     Active Substance: DIETARY SUPPLEMENT\UBIDECARENONE
     Indication: Blood creatine phosphokinase MB increased
     Dosage: 10MG, TID

REACTIONS (1)
  - Diabetes mellitus inadequate control [Recovering/Resolving]
